FAERS Safety Report 8811587 (Version 15)
Quarter: 2015Q4

REPORT INFORMATION
  Report Type: Report from Study
  Country: CA (occurrence: CA)
  Receive Date: 20120927
  Receipt Date: 20151223
  Transmission Date: 20160305
  Serious: Yes (Other)
  Sender: FDA-Public Use
  Company Number: PHHY2012CA082985

PATIENT
  Age: 39 Year
  Sex: Male

DRUGS (7)
  1. PREDNISOL [Concomitant]
     Indication: PRODUCT USED FOR UNKNOWN INDICATION
     Dosage: LOCAL APPLICATION RT EYE EVERY 2H FOR 7 DAYS THEN EVERY 3H FOR 7 DAYS
     Route: 047
  2. PERIDEX [Concomitant]
     Active Substance: CHLORHEXIDINE GLUCONATE
     Indication: PRODUCT USED FOR UNKNOWN INDICATION
     Dosage: GARGLE WITH 15ML 3-4X/DAY FOR 1 MONTH
     Route: 048
  3. GILENYA [Suspect]
     Active Substance: FINGOLIMOD HYDROCHLORIDE
     Indication: RELAPSING-REMITTING MULTIPLE SCLEROSIS
     Dosage: 0.5 MG, QD
     Route: 048
     Dates: start: 20120821, end: 20130219
  4. GILENYA [Suspect]
     Active Substance: FINGOLIMOD HYDROCHLORIDE
     Dosage: 0.5 MG, QD
     Route: 048
     Dates: start: 20130325
  5. BETASERON [Concomitant]
     Active Substance: INTERFERON BETA-1B
     Indication: PRODUCT USED FOR UNKNOWN INDICATION
     Route: 065
  6. MINOCYCLINE [Concomitant]
     Active Substance: MINOCYCLINE\MINOCYCLINE HYDROCHLORIDE
     Indication: PRODUCT USED FOR UNKNOWN INDICATION
     Dosage: 100 MG, TAKE 1 CAP 2X/DAY EVERY 12H AT BREAKFAST AND DINNER FOR 1 MONTH
     Route: 065
  7. PENICILLIN [Concomitant]
     Active Substance: PENICILLIN
     Indication: PRODUCT USED FOR UNKNOWN INDICATION
     Route: 065

REACTIONS (8)
  - Iridocyclitis [Recovered/Resolved]
  - Ocular hyperaemia [Recovering/Resolving]
  - Eye pain [Recovered/Resolved]
  - Photophobia [Recovering/Resolving]
  - Visual impairment [Recovering/Resolving]
  - Vision blurred [Recovering/Resolving]
  - Vitreous floaters [Recovering/Resolving]
  - Retinal tear [Unknown]

NARRATIVE: CASE EVENT DATE: 20120920
